FAERS Safety Report 10341637 (Version 1)
Quarter: 2014Q3

REPORT INFORMATION
  Report Type: Spontaneous
  Country: US (occurrence: None)
  Receive Date: 20140723
  Receipt Date: 20140723
  Transmission Date: 20150326
  Serious: No
  Sender: FDA-Public Use
  Company Number: CC14-0507

PATIENT
  Age: 63 Year
  Sex: Female
  Weight: 77.11 kg

DRUGS (3)
  1. KETOCONAZOLE 2%, SHAMPOO [Suspect]
     Active Substance: KETOCONAZOLE
     Indication: SEBORRHOEIC DERMATITIS
     Dosage: SHAMPOO ONCE DAILY
     Dates: start: 20140401
  2. SYNTHROID [Concomitant]
     Active Substance: LEVOTHYROXINE SODIUM
  3. VITAMIN [Concomitant]
     Active Substance: VITAMINS

REACTIONS (9)
  - Hair colour changes [None]
  - Madarosis [None]
  - Alopecia [None]
  - Trichorrhexis [None]
  - Condition aggravated [None]
  - Hair texture abnormal [None]
  - Seborrhoeic dermatitis [None]
  - Dry skin [None]
  - Skin irritation [None]

NARRATIVE: CASE EVENT DATE: 20140401
